FAERS Safety Report 10495028 (Version 2)
Quarter: 2014Q4

REPORT INFORMATION
  Report Type: Spontaneous
  Country: US (occurrence: US)
  Receive Date: 20141003
  Receipt Date: 20141003
  Transmission Date: 20150528
  Serious: No
  Sender: FDA-Public Use
  Company Number: US-MYLANLABS-2013S1023943

PATIENT
  Age: 21 Year
  Sex: Female
  Weight: 54.43 kg

DRUGS (2)
  1. ORAL CONTRACEPTIVE NOS [Concomitant]
     Active Substance: UNSPECIFIED INGREDIENT
     Indication: CONTRACEPTION
     Dosage: UNK UNK,QD
     Route: 048
  2. CLINDAMYCIN - BENZOYL PEROXIDE [Suspect]
     Active Substance: BENZOYL PEROXIDE\CLINDAMYCIN PHOSPHATE
     Indication: ACNE
     Dosage: 1 %,AM
     Route: 061
     Dates: start: 201305, end: 201305

REACTIONS (2)
  - Application site dermatitis [Recovering/Resolving]
  - Application site hypersensitivity [Recovering/Resolving]

NARRATIVE: CASE EVENT DATE: 201305
